FAERS Safety Report 11693515 (Version 1)
Quarter: 2015Q4

REPORT INFORMATION
  Report Type: Spontaneous
  Country: FR (occurrence: FR)
  Receive Date: 20151103
  Receipt Date: 20151103
  Transmission Date: 20160304
  Serious: Yes (Other)
  Sender: FDA-Public Use
  Company Number: FR-ELI_LILLY_AND_COMPANY-FR201510007007

PATIENT
  Age: 53 Year
  Sex: Female

DRUGS (9)
  1. ALIMTA [Suspect]
     Active Substance: PEMETREXED DISODIUM
     Indication: BRONCHIAL CARCINOMA
     Dosage: 825 MG, SINGLE
     Route: 042
     Dates: start: 20150304
  2. EMEND [Concomitant]
     Active Substance: APREPITANT
     Dosage: 125 MG, CYCLICAL
     Route: 048
     Dates: start: 20150304, end: 20150306
  3. EMEND [Concomitant]
     Active Substance: APREPITANT
     Dosage: 80 MG, CYCLICAL
     Route: 048
  4. CARBOPLATIN HOSPIRA [Suspect]
     Active Substance: CARBOPLATIN
     Indication: BRONCHIAL CARCINOMA
     Dosage: 490 MG, SINGLE
     Route: 042
     Dates: start: 20150304
  5. SETOFILM [Concomitant]
     Dosage: 8 MG, IN THE MORNING AND EVENING FOR 3 DAYS PER CYCLE
     Route: 048
     Dates: start: 20150304, end: 20150306
  6. NEO-MERCAZOLE [Concomitant]
     Active Substance: CARBIMAZOLE
     Dosage: UNK, UNKNOWN
     Route: 048
  7. PRIMPERAN [Concomitant]
     Active Substance: METOCLOPRAMIDE HYDROCHLORIDE
     Dosage: 10 MG, PRN
     Route: 065
     Dates: start: 20150307
  8. ALIMTA [Suspect]
     Active Substance: PEMETREXED DISODIUM
     Dosage: 577.5 MG, CYCLICAL
     Route: 042
  9. CARBOPLATIN HOSPIRA [Suspect]
     Active Substance: CARBOPLATIN
     Dosage: 392 MG, CYCLICAL
     Route: 042

REACTIONS (2)
  - Off label use [Unknown]
  - Hepatocellular injury [Recovered/Resolved]

NARRATIVE: CASE EVENT DATE: 20150325
